FAERS Safety Report 5268596-8 (Version None)
Quarter: 2007Q1

REPORT INFORMATION
  Report Type: 
  Country: None (occurrence: None)
  Receive Date: 20070319
  Receipt Date: 20070307
  Transmission Date: 20070707
  Serious: Yes (Disabling)
  Sender: FDA-Public Use
  Company Number: JP-JNJFOC-20070301818

PATIENT
  Sex: Female
  Weight: 7.4 kg

DRUGS (5)
  1. REMICADE [Suspect]
     Route: 042
  2. REMICADE [Suspect]
     Indication: CROHN'S DISEASE
     Route: 042
  3. PREDONINE [Concomitant]
     Indication: CROHN'S DISEASE
     Route: 048
  4. AZANIN [Concomitant]
     Indication: CROHN'S DISEASE
     Route: 048
  5. SULFASALAZINE [Concomitant]
     Indication: CROHN'S DISEASE
     Route: 048

REACTIONS (1)
  - REYE'S SYNDROME [None]
